FAERS Safety Report 10503691 (Version 1)
Quarter: 2014Q4

REPORT INFORMATION
  Report Type: Spontaneous
  Country: US (occurrence: None)
  Receive Date: 20141007
  Receipt Date: 20141007
  Transmission Date: 20150528
  Serious: No
  Sender: FDA-Public Use
  Company Number: None

PATIENT
  Age: 70 Year
  Sex: Female
  Weight: 104.33 kg

DRUGS (2)
  1. XARELTO [Suspect]
     Active Substance: RIVAROXABAN
     Indication: HIP ARTHROPLASTY
     Dosage: ONE PILL ONCE DAILY TAKEN BY MOUTH
     Route: 048
     Dates: start: 20140912, end: 20140923
  2. XARELTO [Suspect]
     Active Substance: RIVAROXABAN
     Indication: THROMBOSIS PROPHYLAXIS
     Dosage: ONE PILL ONCE DAILY TAKEN BY MOUTH
     Route: 048
     Dates: start: 20140912, end: 20140923

REACTIONS (8)
  - Pruritus [None]
  - Urticaria [None]
  - Burning sensation [None]
  - Agitation [None]
  - Insomnia [None]
  - Hypersensitivity [None]
  - Inflammation [None]
  - Hyperaesthesia [None]

NARRATIVE: CASE EVENT DATE: 20140912
